FAERS Safety Report 20660663 (Version 2)
Quarter: 2022Q2

REPORT INFORMATION
  Report Type: Spontaneous
  Country: SE (occurrence: SE)
  Receive Date: 20220331
  Receipt Date: 20220407
  Transmission Date: 20220720
  Serious: Yes (Hospitalization)
  Sender: FDA-Public Use
  Company Number: SE-TEVA-2022-SE-2021471

PATIENT
  Age: 25 Year
  Sex: Male

DRUGS (33)
  1. DIAZEPAM [Suspect]
     Active Substance: DIAZEPAM
     Indication: Anxiety
     Route: 065
  2. DIAZEPAM [Suspect]
     Active Substance: DIAZEPAM
     Indication: Agitation
  3. DIAZEPAM [Suspect]
     Active Substance: DIAZEPAM
     Indication: Intentional self-injury
  4. RISPERIDONE [Suspect]
     Active Substance: RISPERIDONE
     Indication: Schizophrenia
     Dosage: 6 MILLIGRAM DAILY;
     Route: 065
     Dates: start: 2015, end: 2016
  5. HALOPERIDOL [Suspect]
     Active Substance: HALOPERIDOL
     Indication: Schizophrenia
     Dosage: UP TO 10 MG/D
     Route: 065
     Dates: start: 2015
  6. HALOPERIDOL [Suspect]
     Active Substance: HALOPERIDOL
     Dosage: 7.5 MILLIGRAM DAILY;
     Route: 030
  7. CARIPRAZINE [Suspect]
     Active Substance: CARIPRAZINE
     Indication: Schizophrenia
     Dosage: 1.5 MILLIGRAM DAILY;
     Route: 065
     Dates: start: 2020, end: 2020
  8. CARIPRAZINE [Suspect]
     Active Substance: CARIPRAZINE
     Dosage: 6 MILLIGRAM DAILY; A TARGET DOSE OF 6 MG/D ON DAY 9
     Route: 065
     Dates: start: 2020
  9. CLONAZEPAM [Concomitant]
     Active Substance: CLONAZEPAM
     Indication: Anxiety
     Route: 065
  10. CLONAZEPAM [Concomitant]
     Active Substance: CLONAZEPAM
     Indication: Agitation
  11. CLONAZEPAM [Concomitant]
     Active Substance: CLONAZEPAM
     Indication: Intentional self-injury
  12. OXAZEPAM [Concomitant]
     Active Substance: OXAZEPAM
     Indication: Anxiety
     Route: 065
  13. OXAZEPAM [Concomitant]
     Active Substance: OXAZEPAM
     Indication: Intentional self-injury
  14. OXAZEPAM [Concomitant]
     Active Substance: OXAZEPAM
     Indication: Agitation
  15. LORAZEPAM [Concomitant]
     Active Substance: LORAZEPAM
     Indication: Anxiety
     Route: 065
  16. LORAZEPAM [Concomitant]
     Active Substance: LORAZEPAM
     Indication: Intentional self-injury
  17. LORAZEPAM [Concomitant]
     Active Substance: LORAZEPAM
     Indication: Agitation
  18. CLOZAPINE [Concomitant]
     Active Substance: CLOZAPINE
     Indication: Schizophrenia
     Dosage: UP TO 700 MG/D
     Route: 065
     Dates: start: 2015, end: 2018
  19. OLANZAPINE [Concomitant]
     Active Substance: OLANZAPINE
     Indication: Schizophrenia
     Dosage: UP TO 30 MG/D
     Route: 065
     Dates: start: 2018
  20. OLANZAPINE [Concomitant]
     Active Substance: OLANZAPINE
     Dosage: PRN 7.5-15 MG DURING EXACERBATIONS
     Route: 065
  21. QUETIAPINE [Concomitant]
     Active Substance: QUETIAPINE
     Indication: Schizophrenia
     Dosage: 900 MILLIGRAM DAILY;
     Route: 065
  22. QUETIAPINE [Concomitant]
     Active Substance: QUETIAPINE
     Indication: Anxiety
  23. QUETIAPINE [Concomitant]
     Active Substance: QUETIAPINE
     Indication: Hallucination
  24. ARIPIPRAZOLE [Concomitant]
     Active Substance: ARIPIPRAZOLE
     Indication: Schizophrenia
     Dosage: UP TO 30 MG/D
     Route: 065
     Dates: start: 201710, end: 201710
  25. LITHIUM [Concomitant]
     Active Substance: LITHIUM
     Indication: Schizophrenia
     Dosage: UP TO 210 MG/D
     Route: 065
     Dates: start: 201810
  26. LITHIUM [Concomitant]
     Active Substance: LITHIUM
     Route: 065
  27. MIRTAZAPINE [Concomitant]
     Active Substance: MIRTAZAPINE
     Indication: Schizophrenia
     Dosage: 45 MILLIGRAM DAILY;
     Route: 065
  28. TRIMEPRAZINE [Concomitant]
     Active Substance: TRIMEPRAZINE
     Indication: Anxiety
     Route: 065
  29. TRIMEPRAZINE [Concomitant]
     Active Substance: TRIMEPRAZINE
     Indication: Agitation
  30. TRIMEPRAZINE [Concomitant]
     Active Substance: TRIMEPRAZINE
     Indication: Intentional self-injury
  31. LEVOMEPROMAZINE [Concomitant]
     Active Substance: LEVOMEPROMAZINE
     Indication: Anxiety
     Route: 065
  32. LEVOMEPROMAZINE [Concomitant]
     Active Substance: LEVOMEPROMAZINE
     Indication: Agitation
  33. LEVOMEPROMAZINE [Concomitant]
     Active Substance: LEVOMEPROMAZINE
     Indication: Intentional self-injury

REACTIONS (3)
  - Extrapyramidal disorder [Recovering/Resolving]
  - Ejaculation disorder [Unknown]
  - Akathisia [Not Recovered/Not Resolved]

NARRATIVE: CASE EVENT DATE: 20150101
